FAERS Safety Report 10216300 (Version 2)
Quarter: 2014Q2

REPORT INFORMATION
  Report Type: Spontaneous
  Country: IT (occurrence: IT)
  Receive Date: 20140604
  Receipt Date: 20140611
  Transmission Date: 20141212
  Serious: Yes (Death, Hospitalization, Other)
  Sender: FDA-Public Use
  Company Number: IT-SA-2014SA067707

PATIENT
  Age: 67 Year
  Sex: Male

DRUGS (2)
  1. JEVTANA [Suspect]
     Indication: PROSTATE CANCER
     Route: 041
     Dates: start: 201404
  2. JEVTANA [Suspect]
     Indication: PROSTATE CANCER
     Route: 041
     Dates: start: 20140505, end: 20140505

REACTIONS (5)
  - Death [Fatal]
  - Diarrhoea [Unknown]
  - Renal failure acute [Unknown]
  - Urosepsis [Unknown]
  - Septic shock [Recovering/Resolving]
